FAERS Safety Report 6446326-1 (Version None)
Quarter: 2009Q4

REPORT INFORMATION
  Report Type: 
  Country: None (occurrence: None)
  Receive Date: 20091119
  Receipt Date: 20091116
  Transmission Date: 20100525
  Serious: Yes (Other)
  Sender: FDA-Public Use
  Company Number: AU-SANOFI-AVENTIS-200912792GDDC

PATIENT
  Age: 29 Year
  Sex: Female
  Weight: 96 kg

DRUGS (1)
  1. LEFLUNOMIDE [Suspect]
     Indication: ARTHRITIS
     Dosage: DOSE AS USED: UNK
     Route: 064
     Dates: end: 20081106

REACTIONS (3)
  - DRUG EXPOSURE DURING PREGNANCY [None]
  - GESTATIONAL DIABETES [None]
  - PROLONGED LABOUR [None]
